FAERS Safety Report 8087480-8 (Version None)
Quarter: 2012Q1

REPORT INFORMATION
  Report Type: 
  Country: None (occurrence: None)
  Receive Date: 20120128
  Receipt Date: 20110430
  Transmission Date: 20120608
  Serious: No
  Sender: FDA-Public Use
  Company Number: US-ABBOTT-11P-163-0722925-00

PATIENT
  Age: 52 Year
  Sex: Male

DRUGS (5)
  1. DILANTIN [Concomitant]
     Indication: CONVULSION
     Dosage: 500MG DAILY
  2. PREDNISONE TAB [Concomitant]
     Indication: CROHN'S DISEASE
     Dosage: TAPERING DOSE
  3. LEXAPRO [Concomitant]
     Indication: PSYCHOTHERAPY
     Dosage: 10MG DAILY
  4. HUMIRA [Suspect]
     Indication: CROHN'S DISEASE
     Dates: start: 20110201
  5. LAMICTAL [Concomitant]
     Indication: CONVULSION PROPHYLAXIS

REACTIONS (2)
  - INJECTION SITE PAIN [None]
  - TINNITUS [None]
